FAERS Safety Report 15083373 (Version 1)
Quarter: 2018Q2

REPORT INFORMATION
  Report Type: Spontaneous
  Country: US (occurrence: US)
  Receive Date: 20180628
  Receipt Date: 20180628
  Transmission Date: 20180711
  Serious: Yes (Hospitalization)
  Sender: FDA-Public Use
  Company Number: US-VERTEX PHARMACEUTICALS-2018-004361

PATIENT
  Age: 12 Year
  Sex: Male

DRUGS (10)
  1. URSODIOL. [Concomitant]
     Active Substance: URSODIOL
  2. VITAMIN D3 [Concomitant]
     Active Substance: CHOLECALCIFEROL
  3. ZENPEP [Concomitant]
     Active Substance: PANCRELIPASE AMYLASE\PANCRELIPASE LIPASE\PANCRELIPASE PROTEASE
  4. ORKAMBI [Suspect]
     Active Substance: IVACAFTOR\LUMACAFTOR
     Indication: CYSTIC FIBROSIS
     Dosage: 400/250 MG, BID
     Route: 048
     Dates: start: 20170818
  5. STERILE WATER [Concomitant]
     Active Substance: WATER
  6. SINUS RINSE [Concomitant]
     Active Substance: SODIUM BICARBONATE\SODIUM CHLORIDE
  7. VANCOMYCIN [Concomitant]
     Active Substance: VANCOMYCIN
  8. LIDOCAINE. [Concomitant]
     Active Substance: LIDOCAINE
  9. CYPROHEPTADINE. [Concomitant]
     Active Substance: CYPROHEPTADINE
  10. MEPHYTON [Concomitant]
     Active Substance: PHYTONADIONE

REACTIONS (1)
  - Cystic fibrosis [Unknown]

NARRATIVE: CASE EVENT DATE: 201806
